FAERS Safety Report 20233203 (Version 1)
Quarter: 2021Q4

REPORT INFORMATION
  Report Type: Spontaneous
  Country: US (occurrence: None)
  Receive Date: 20211226
  Receipt Date: 20211226
  Transmission Date: 20220303
  Serious: Yes (Disabling)
  Sender: FDA-Public Use
  Company Number: None

PATIENT
  Age: 62 Year
  Sex: Female
  Weight: 83.25 kg

DRUGS (1)
  1. ARMOUR THYROID [Suspect]
     Active Substance: THYROID, PORCINE
     Indication: Thyroidectomy
     Route: 048
     Dates: start: 20200928, end: 20211216

REACTIONS (5)
  - Atrial fibrillation [None]
  - Manufacturing issue [None]
  - Feeling abnormal [None]
  - Mitral valve incompetence [None]
  - Product quality issue [None]

NARRATIVE: CASE EVENT DATE: 20211215
